FAERS Safety Report 5265332-6 (Version None)
Quarter: 2007Q1

REPORT INFORMATION
  Report Type: 
  Country: None (occurrence: None)
  Receive Date: 20061213
  Receipt Date: 20040121
  Transmission Date: 20070707
  Serious: Yes (Other)
  Sender: FDA-Public Use
  Company Number: 2004UW01045

PATIENT
  Age: 56 Year
  Sex: Female
  Weight: 81.6475 kg

DRUGS (5)
  1. IRESSA [Suspect]
     Dates: start: 20020701, end: 20030701
  2. IRESSA [Suspect]
     Dosage: 250 MG DAILY PO
     Route: 048
     Dates: start: 20031001
  3. PREVACID [Concomitant]
  4. ROBINAL [Concomitant]
  5. BEXTRA [Concomitant]

REACTIONS (4)
  - ACNE [None]
  - DIARRHOEA [None]
  - DRY SKIN [None]
  - MUSCLE SPASMS [None]
